FAERS Safety Report 6013621-X (Version None)
Quarter: 2008Q4

REPORT INFORMATION
  Report Type: 
  Country: None (occurrence: None)
  Receive Date: 20081219
  Receipt Date: 20081216
  Transmission Date: 20090506
  Serious: Yes (Hospitalization)
  Sender: FDA-Public Use
  Company Number: FR-BRISTOL-MYERS SQUIBB COMPANY-14445894

PATIENT
  Age: 73 Year
  Sex: Female

DRUGS (4)
  1. COAPROVEL [Suspect]
     Dates: end: 20080417
  2. LIPANTHYL [Concomitant]
     Dates: end: 20080417
  3. ATENOLOL [Concomitant]
  4. DIOVENOR [Concomitant]
     Dates: end: 20080417

REACTIONS (5)
  - DEHYDRATION [None]
  - DIARRHOEA [None]
  - HYPOKALAEMIA [None]
  - HYPONATRAEMIA [None]
  - PYREXIA [None]
